FAERS Safety Report 15736730 (Version 1)
Quarter: 2018Q4

REPORT INFORMATION
  Report Type: Spontaneous
  Country: US (occurrence: US)
  Receive Date: 20181204
  Receipt Date: 20181204
  Transmission Date: 20190205
  Serious: Yes (Hospitalization)
  Sender: FDA-Public Use
  Company Number: None

PATIENT
  Sex: Male

DRUGS (6)
  1. ADCIRCA [Concomitant]
     Active Substance: TADALAFIL
     Dates: start: 20181017
  2. TRIAMCINOLONE CRE 0.1% [Concomitant]
     Dates: start: 20181009
  3. FUROSEMIDE TAB 20MG [Concomitant]
     Dates: start: 20180924
  4. TADALAFIL TABLET [Suspect]
     Active Substance: TADALAFIL
     Indication: PULMONARY ARTERIAL HYPERTENSION
     Route: 048
  5. CYANOCOBALAM INJ 1000MCG [Concomitant]
     Dates: start: 20180913
  6. METOLAZONE TAB 2.5MG [Concomitant]

REACTIONS (1)
  - Fluid retention [None]
